FAERS Safety Report 10079707 (Version 1)
Quarter: 2014Q2

REPORT INFORMATION
  Report Type: Spontaneous
  Country: US (occurrence: US)
  Receive Date: 20140415
  Receipt Date: 20140415
  Transmission Date: 20141212
  Serious: Yes (Other)
  Sender: FDA-Public Use
  Company Number: US-ACTAVIS-2014-07334

PATIENT
  Age: 38 Year
  Sex: Male

DRUGS (10)
  1. ACETYLSALICYLIC ACID (UNKNOWN) [Suspect]
     Indication: IMMUNE TOLERANCE INDUCTION
     Dosage: 81 MG, ON DAY 2 AND ON DAY 3
     Route: 065
  2. IBUPROFEN (AMALLC) [Suspect]
     Indication: IMMUNE TOLERANCE INDUCTION
     Dosage: UNK
     Route: 065
  3. IBUPROFEN (AMALLC) [Suspect]
     Dosage: 50 MG, SINGLE
     Route: 065
  4. LORATADINE [Concomitant]
     Indication: PRODUCT USED FOR UNKNOWN INDICATION
     Dosage: 10 MG, DAILY
     Route: 065
  5. MONTELUKAST [Concomitant]
     Indication: PRODUCT USED FOR UNKNOWN INDICATION
     Dosage: 10 MG, DAILY
     Route: 065
  6. FLUTICASONE W/SALMETEROL [Concomitant]
     Indication: PRODUCT USED FOR UNKNOWN INDICATION
     Dosage: 250/50 QHS
     Route: 065
  7. OLOPATADINE [Concomitant]
     Indication: PRODUCT USED FOR UNKNOWN INDICATION
     Dosage: 65 ?G BID
     Route: 065
  8. MOMETASONE FUROATE [Concomitant]
     Indication: PRODUCT USED FOR UNKNOWN INDICATION
     Dosage: 50 ?G, BID
     Route: 065
  9. ALBUTEROL                          /00139501/ [Concomitant]
     Indication: PRODUCT USED FOR UNKNOWN INDICATION
     Dosage: 12 PUFFS ,Q4H,PRN
     Route: 055
  10. AMLODIPINE [Concomitant]
     Indication: PRODUCT USED FOR UNKNOWN INDICATION
     Dosage: 10 MG, DAILY
     Route: 065

REACTIONS (4)
  - Allergic respiratory disease [Recovered/Resolved]
  - Urticaria [Recovered/Resolved]
  - Angioedema [Recovered/Resolved]
  - Drug hypersensitivity [Recovered/Resolved]
